FAERS Safety Report 5165513-6 (Version None)
Quarter: 2006Q4

REPORT INFORMATION
  Report Type: 
  Country: None (occurrence: None)
  Receive Date: 20061206
  Receipt Date: 20061128
  Transmission Date: 20070319
  Serious: Yes (Hospitalization)
  Sender: FDA-Public Use
  Company Number: 2006PK02474

PATIENT
  Age: 19071 Day
  Sex: Female

DRUGS (5)
  1. SEROQUEL [Suspect]
     Route: 048
  2. PERAZIN [Suspect]
  3. DIAZEPAM [Concomitant]
  4. ERGENYL [Concomitant]
  5. ERGENYL [Concomitant]

REACTIONS (7)
  - ANAEMIA [None]
  - BLOOD DISORDER [None]
  - CARDIOVASCULAR DISORDER [None]
  - DIARRHOEA [None]
  - GENERAL PHYSICAL HEALTH DETERIORATION [None]
  - PANCYTOPENIA [None]
  - WEIGHT DECREASED [None]
